FAERS Safety Report 8939201 (Version 1)
Quarter: 2012Q4

REPORT INFORMATION
  Report Type: 
  Country: US (occurrence: US)
  Receive Date: 20121203
  Receipt Date: 20121203
  Transmission Date: 20130627
  Serious: No
  Sender: FDA-Public Use
  Company Number: US-PFIZER INC-2012302004

PATIENT
  Sex: Male

DRUGS (5)
  1. LIPITOR [Suspect]
     Dosage: 20 mg, UNK
  2. LIPITOR [Suspect]
     Dosage: 40 mg, UNK
  3. DIOVAN [Concomitant]
     Indication: BLOOD PRESSURE ABNORMAL
     Dosage: 320 mg, daily
  4. CARVEDILOL [Concomitant]
     Indication: BLOOD PRESSURE ABNORMAL
     Dosage: 12.5 mg, 2x/day
  5. DOXAZOSIN MESILATE [Concomitant]
     Indication: BLOOD PRESSURE ABNORMAL
     Dosage: 1 mg, daily

REACTIONS (1)
  - Muscle spasms [Recovered/Resolved]
